FAERS Safety Report 14485716 (Version 1)
Quarter: 2018Q1

REPORT INFORMATION
  Report Type: Spontaneous
  Country: US (occurrence: US)
  Receive Date: 20180205
  Receipt Date: 20180205
  Transmission Date: 20180509
  Serious: Yes (Other)
  Sender: FDA-Public Use
  Company Number: US-DSJP-DSU-2017-141548

PATIENT

DRUGS (2)
  1. BENICAR [Suspect]
     Active Substance: OLMESARTAN MEDOXOMIL
     Dosage: 40 MG, QD
     Dates: end: 20140717
  2. BENICAR [Suspect]
     Active Substance: OLMESARTAN MEDOXOMIL
     Indication: HYPERTENSION
     Dosage: 40 MG, QD
     Dates: start: 20110901, end: 20131209

REACTIONS (5)
  - Sprue-like enteropathy [Recovering/Resolving]
  - Diverticulum [Unknown]
  - Diverticulitis [Unknown]
  - Gastrooesophageal reflux disease [Unknown]
  - Haemorrhoids [Unknown]

NARRATIVE: CASE EVENT DATE: 20110901
